FAERS Safety Report 19056402 (Version 2)
Quarter: 2021Q1

REPORT INFORMATION
  Report Type: Report from Study
  Country: DE (occurrence: DE)
  Receive Date: 20210324
  Receipt Date: 20210327
  Transmission Date: 20210420
  Serious: Yes (Other)
  Sender: FDA-Public Use
  Company Number: NVSC2021DE064958

PATIENT
  Sex: Female
  Weight: 76 kg

DRUGS (8)
  1. FERRO SANOL [Suspect]
     Active Substance: FERROUS GLYCINE SULFATE
     Indication: HYPOCHROMIC ANAEMIA
     Dosage: THRICE 35 DROPS,QD
     Route: 065
  2. DEKRISTOL [Concomitant]
     Active Substance: CHOLECALCIFEROL
     Indication: VITAMIN D DEFICIENCY
     Dosage: 20000 IU, QW
     Route: 065
  3. VITAMIN B6 [Concomitant]
     Active Substance: PYRIDOXINE HYDROCHLORIDE
     Indication: PROPHYLAXIS
     Dosage: UNK, PRN
     Route: 065
  4. FOLIC ACID. [Concomitant]
     Active Substance: FOLIC ACID
     Indication: PROPHYLAXIS
     Dosage: UNK, PRN
     Route: 065
  5. VITAMIN B12 [Concomitant]
     Active Substance: CYANOCOBALAMIN
     Indication: PROPHYLAXIS
     Dosage: UNK, PRN
     Route: 065
  6. VITAMIN B7 [Concomitant]
     Indication: ALOPECIA
     Dosage: 900 UG, QD (ONCE IN MORNING)
     Route: 065
     Dates: start: 20200609
  7. GILENYA [Suspect]
     Active Substance: FINGOLIMOD HYDROCHLORIDE
     Indication: MULTIPLE SCLEROSIS
     Dosage: 0.5 MG, QD
     Route: 048
     Dates: start: 20180517
  8. FERROGAMMA [Concomitant]
     Indication: HYPOCHROMIC ANAEMIA
     Dosage: UNK
     Route: 065
     Dates: start: 20191129

REACTIONS (7)
  - Lymphocyte count decreased [Not Recovered/Not Resolved]
  - CD4 lymphocytes decreased [Recovered/Resolved]
  - CD4 lymphocytes decreased [Unknown]
  - Drug intolerance [Unknown]
  - CD4 lymphocytes decreased [Recovered/Resolved]
  - CD4 lymphocytes decreased [Recovered/Resolved]
  - Infection [Unknown]

NARRATIVE: CASE EVENT DATE: 20180815
